FAERS Safety Report 8824805 (Version 3)
Quarter: 2012Q4

REPORT INFORMATION
  Report Type: 
  Country: US (occurrence: US)
  Receive Date: 20121004
  Receipt Date: 20121101
  Transmission Date: 20130627
  Serious: Yes (Other)
  Sender: FDA-Public Use
  Company Number: US-ROCHE-1072446

PATIENT
  Age: 23 Year
  Sex: Female
  Weight: 67.19 kg

DRUGS (2)
  1. ACCUTANE [Suspect]
     Indication: ACNE
     Dosage: 40 mg alternating with 80 mg every other day
     Route: 048
     Dates: start: 20000831
  2. ACCUTANE [Suspect]
     Route: 048
     Dates: start: 20001128, end: 20010108

REACTIONS (6)
  - Inflammatory bowel disease [Unknown]
  - Colitis ulcerative [Unknown]
  - Anxiety [Unknown]
  - Dry skin [Unknown]
  - Lip dry [Unknown]
  - Cheilitis [Unknown]
